FAERS Safety Report 5283331-5 (Version None)
Quarter: 2007Q2

REPORT INFORMATION
  Report Type: 
  Country: None (occurrence: None)
  Receive Date: 20070402
  Receipt Date: 20070321
  Transmission Date: 20071010
  Serious: Yes (Disabling, Other)
  Sender: FDA-Public Use
  Company Number: 2007GB00593

PATIENT
  Age: 41 Year
  Sex: Female
  Weight: 65 kg

DRUGS (2)
  1. ANASTROZOLE [Suspect]
     Indication: BREAST CANCER
     Route: 048
     Dates: start: 20070216, end: 20070228
  2. UNSPECIFIED CHEMOTHERAPY [Concomitant]

REACTIONS (3)
  - OPTIC NEURITIS [None]
  - PAIN [None]
  - VISUAL ACUITY REDUCED [None]
